FAERS Safety Report 5072862-9 (Version None)
Quarter: 2006Q3

REPORT INFORMATION
  Report Type: 
  Country: None (occurrence: None)
  Receive Date: 20060802
  Receipt Date: 20060731
  Transmission Date: 20061208
  Serious: Yes (Other)
  Sender: FDA-Public Use
  Company Number: TCI2006A03100

PATIENT
  Age: 51 Year
  Sex: Female

DRUGS (1)
  1. TAKEPRON                     CAPSULES 15 (LANSOPRAZOLE) [Suspect]
     Indication: DRUG USE FOR UNKNOWN INDICATION
     Dosage: PER ORAL
     Route: 048
     Dates: start: 20000501, end: 20040301

REACTIONS (4)
  - CATARACT [None]
  - ERYTHEMA MULTIFORME [None]
  - OESOPHAGEAL ULCER [None]
  - STEVENS-JOHNSON SYNDROME [None]
